FAERS Safety Report 4406797-9 (Version None)
Quarter: 2004Q3

REPORT INFORMATION
  Report Type: 
  Country: None (occurrence: None)
  Receive Date: 20040715
  Receipt Date: 20040701
  Transmission Date: 20050211
  Serious: Yes (Hospitalization)
  Sender: FDA-Public Use
  Company Number: FR-JNJFOC-20040302978

PATIENT
  Age: 74 Year
  Sex: Male
  Weight: 77 kg

DRUGS (2)
  1. LEUSTATIN [Suspect]
     Indication: HAIRY CELL LEUKAEMIA
     Dosage: 10 MG, 1 IN 1 DAY
     Dates: start: 20040213, end: 20040217
  2. BACTRIM [Suspect]
     Indication: ADVERSE EVENT
     Dosage: ORAL
     Route: 048
     Dates: start: 20040217, end: 20040221

REACTIONS (6)
  - ASTHENIA [None]
  - CHILLS [None]
  - PYREXIA [None]
  - RENAL FAILURE ACUTE [None]
  - RHABDOMYOLYSIS [None]
  - TOXIC SKIN ERUPTION [None]
